FAERS Safety Report 9238133 (Version 2)
Quarter: 2013Q2

REPORT INFORMATION
  Report Type: Report from Study
  Country: AU (occurrence: AU)
  Receive Date: 20130418
  Receipt Date: 20130528
  Transmission Date: 20140414
  Serious: Yes (Death, Other)
  Sender: FDA-Public Use
  Company Number: PHHY2013AU037379

PATIENT
  Sex: Male

DRUGS (2)
  1. ACLASTA [Suspect]
     Dosage: 5 MG
     Route: 042
     Dates: start: 20100824
  2. ACLASTA [Suspect]
     Dosage: 5 MG
     Route: 042
     Dates: start: 20120305

REACTIONS (4)
  - Dementia [Fatal]
  - Cardiac failure chronic [Fatal]
  - Cardiac arrest [Fatal]
  - Colon cancer [Unknown]
